FAERS Safety Report 5408177-6 (Version None)
Quarter: 2007Q3

REPORT INFORMATION
  Report Type: 
  Country: None (occurrence: None)
  Receive Date: 20070808
  Receipt Date: 20070803
  Transmission Date: 20080115
  Serious: Yes (Hospitalization, Other)
  Sender: FDA-Public Use
  Company Number: HQWYE085013AUG03

PATIENT
  Sex: Female
  Weight: 59.47 kg

DRUGS (4)
  1. PREMPRO [Suspect]
     Indication: HORMONE REPLACEMENT THERAPY
     Dosage: UNKNOWN
     Route: 048
     Dates: start: 19980701, end: 20001001
  2. MEDROXYPROGESTERONE ACETATE [Suspect]
  3. MEDROXYPROGESTERONE ACETATE [Suspect]
  4. DICLOFENAC SODIUM [Concomitant]

REACTIONS (5)
  - DEEP VEIN THROMBOSIS [None]
  - OVARIAN CANCER [None]
  - PULMONARY EMBOLISM [None]
  - RENAL VEIN THROMBOSIS [None]
  - VENA CAVA THROMBOSIS [None]
